FAERS Safety Report 7508535-X (Version None)
Quarter: 2011Q2

REPORT INFORMATION
  Report Type: 
  Country: None (occurrence: None)
  Receive Date: 20110527
  Receipt Date: 20110518
  Transmission Date: 20111010
  Serious: Yes (Hospitalization)
  Sender: FDA-Public Use
  Company Number: US-ELI_LILLY_AND_COMPANY-US201105005618

PATIENT
  Sex: Male

DRUGS (3)
  1. HUMALOG [Suspect]
     Indication: DIABETES MELLITUS
     Dosage: UNK UNK, PRN
  2. LANTUS [Concomitant]
     Dosage: 20 U, UNK
  3. HUMALOG [Suspect]
     Dosage: 11 U, UNK

REACTIONS (4)
  - INCORRECT PRODUCT STORAGE [None]
  - HOSPITALISATION [None]
  - BLOOD GLUCOSE INCREASED [None]
  - DRUG INEFFECTIVE [None]
